FAERS Safety Report 9630053 (Version 3)
Quarter: 2014Q2

REPORT INFORMATION
  Report Type: Spontaneous
  Country: US (occurrence: US)
  Receive Date: 20131017
  Receipt Date: 20140521
  Transmission Date: 20141212
  Serious: Yes (Hospitalization)
  Sender: FDA-Public Use
  Company Number: US-B.I. PHARMACEUTICALS,INC./RIDGEFIELD-2013-BI-32350BP

PATIENT
  Age: 84 Year
  Sex: Female
  Weight: 39.9 kg

DRUGS (7)
  1. PRADAXA [Suspect]
     Indication: CEREBROVASCULAR ACCIDENT PROPHYLAXIS
     Dosage: 300 MG
     Route: 065
     Dates: start: 201103, end: 201201
  2. MOBIC [Concomitant]
     Dosage: 7.5 MG
     Route: 065
     Dates: start: 2005
  3. LISINOPRIL [Concomitant]
     Dosage: 40 MG
     Route: 065
     Dates: start: 2005
  4. LORTAB [Concomitant]
     Indication: PAIN IN EXTREMITY
     Route: 065
  5. VERAPAMIL HCL CR [Concomitant]
     Dosage: 240 MG
     Route: 065
     Dates: start: 2005
  6. CORDARONE [Concomitant]
     Dosage: 200 MG
     Route: 065
     Dates: end: 2011
  7. PHENERGAN [Concomitant]
     Route: 065

REACTIONS (6)
  - Gastrointestinal haemorrhage [Unknown]
  - Ischaemic stroke [Unknown]
  - Vaginal haemorrhage [Unknown]
  - Rectal prolapse [Unknown]
  - Post procedural haemorrhage [Unknown]
  - Epistaxis [Unknown]
